FAERS Safety Report 10272402 (Version 3)
Quarter: 2015Q3

REPORT INFORMATION
  Report Type: Report from Study
  Country: US (occurrence: US)
  Receive Date: 20140702
  Receipt Date: 20150805
  Transmission Date: 20151125
  Serious: Yes (Other)
  Sender: FDA-Public Use
  Company Number: US-AMGEN-USASP2014049137

PATIENT
  Age: 69 Year
  Sex: Female

DRUGS (1)
  1. ENBREL [Suspect]
     Active Substance: ETANERCEPT
     Indication: RHEUMATOID ARTHRITIS
     Dosage: UNK
     Route: 065
     Dates: start: 20131201

REACTIONS (4)
  - Procedural pain [Not Recovered/Not Resolved]
  - Malaise [Unknown]
  - Arthropathy [Not Recovered/Not Resolved]
  - Knee operation [Not Recovered/Not Resolved]
